FAERS Safety Report 8479744-0 (Version None)
Quarter: 2012Q2

REPORT INFORMATION
  Report Type: 
  Country: None (occurrence: None)
  Receive Date: 20120629
  Receipt Date: 20120621
  Transmission Date: 20120825
  Serious: Yes (Hospitalization)
  Sender: FDA-Public Use
  Company Number: CA-ROCHE-1077399

PATIENT
  Sex: Male

DRUGS (8)
  1. INSULIN HUMAN [Concomitant]
     Dates: start: 19930101
  2. FELODIPINE [Concomitant]
     Dates: start: 20080101
  3. RANIBIZUMAB [Suspect]
     Dosage: LAST DOSE PRIOR TO SAE: 28/MAR/2012
     Route: 050
     Dates: start: 20120328, end: 20120328
  4. FUROSEMIDE [Concomitant]
     Dates: start: 20070101
  5. RANIBIZUMAB [Suspect]
     Indication: DIABETIC RETINAL OEDEMA
     Route: 050
     Dates: start: 20120201, end: 20120201
  6. LISINOPRIL [Concomitant]
     Dates: start: 20070101
  7. CODEINE SULFATE [Concomitant]
     Dates: start: 20060101
  8. CITALOPRAM HYDROBROMIDE [Concomitant]
     Dates: start: 20070101

REACTIONS (1)
  - CARDIAC FAILURE CONGESTIVE [None]
